FAERS Safety Report 10547960 (Version 1)
Quarter: 2014Q4

REPORT INFORMATION
  Report Type: Spontaneous
  Country: US (occurrence: None)
  Receive Date: 20141027
  Receipt Date: 20141027
  Transmission Date: 20150529
  Serious: Yes (Death)
  Sender: FDA-Public Use
  Company Number: None

PATIENT
  Age: 74 Year
  Sex: Female
  Weight: 90.72 kg

DRUGS (1)
  1. XARELTO [Suspect]
     Active Substance: RIVAROXABAN
     Indication: ATRIAL FIBRILLATION
     Dates: start: 20131103, end: 20131110

REACTIONS (4)
  - Contraindicated drug administered [None]
  - Multi-organ failure [None]
  - Haematemesis [None]
  - Cerebrovascular accident [None]

NARRATIVE: CASE EVENT DATE: 20131105
